FAERS Safety Report 20992798 (Version 1)
Quarter: 2022Q2

REPORT INFORMATION
  Report Type: Spontaneous
  Country: US (occurrence: None)
  Receive Date: 20220621
  Receipt Date: 20220621
  Transmission Date: 20220721
  Serious: Yes (Death, Hospitalization)
  Sender: FDA-Public Use
  Company Number: None

PATIENT
  Age: 69 Year
  Sex: Female

DRUGS (17)
  1. AMBRISENTAN [Suspect]
     Active Substance: AMBRISENTAN
     Indication: Pulmonary hypertension
     Dosage: FREQUENCY : DAILY;?
     Route: 048
     Dates: start: 20220309, end: 20220605
  2. SILDENAFIL [Concomitant]
  3. METOLAZONE [Concomitant]
     Active Substance: METOLAZONE
  4. PERCOCET [Concomitant]
     Active Substance: ACETAMINOPHEN\OXYCODONE HYDROCHLORIDE
  5. K-TAB [Concomitant]
     Active Substance: POTASSIUM CHLORIDE
  6. BUMETANIDE [Concomitant]
     Active Substance: BUMETANIDE
  7. WARFARIN [Concomitant]
     Active Substance: WARFARIN
  8. PRAVASTATIN [Concomitant]
     Active Substance: PRAVASTATIN
  9. OMEPRAZOLE [Concomitant]
     Active Substance: OMEPRAZOLE
  10. GABAPENTIN [Concomitant]
     Active Substance: GABAPENTIN
  11. HYDRALAZINE [Concomitant]
  12. LEFLUNOMIDE [Concomitant]
     Active Substance: LEFLUNOMIDE
  13. HYDROXYCHLOROQUINE [Concomitant]
     Active Substance: HYDROXYCHLOROQUINE
  14. MIRTAZAPINE [Concomitant]
  15. LEVOTHYROXINE [Concomitant]
  16. ASPIRIN [Concomitant]
     Active Substance: ASPIRIN
  17. MULTIVITAMIN-MINERALS [Concomitant]

REACTIONS (6)
  - Acute kidney injury [None]
  - Blood urea increased [None]
  - Hyponatraemia [None]
  - Hypocalcaemia [None]
  - Acute respiratory failure [None]
  - Pulmonary hypertension [None]

NARRATIVE: CASE EVENT DATE: 20220605
